FAERS Safety Report 4943628-2 (Version None)
Quarter: 2006Q1

REPORT INFORMATION
  Report Type: 
  Country: None (occurrence: None)
  Receive Date: 20060310
  Receipt Date: 20060223
  Transmission Date: 20060701
  Serious: Yes (Hospitalization)
  Sender: FDA-Public Use
  Company Number: B0412311A

PATIENT
  Age: 73 Year
  Sex: Female

DRUGS (3)
  1. VALTREX [Suspect]
     Indication: HERPES ZOSTER
     Dosage: 1000 MG/ PER DAY / ORAL
     Route: 048
     Dates: start: 20060201, end: 20060202
  2. MECOBALAMIN [Concomitant]
  3. TIARAMIDE HYDROCHLORIDE [Concomitant]

REACTIONS (4)
  - DIZZINESS [None]
  - DYSLALIA [None]
  - MUSCULAR WEAKNESS [None]
  - NERVOUS SYSTEM DISORDER [None]
